FAERS Safety Report 13385275 (Version 1)
Quarter: 2017Q1

REPORT INFORMATION
  Report Type: Spontaneous
  Country: MX (occurrence: MX)
  Receive Date: 20170330
  Receipt Date: 20170330
  Transmission Date: 20170429
  Serious: Yes (Other)
  Sender: FDA-Public Use
  Company Number: ALCN2016MX007149

PATIENT
  Age: 60 Year
  Sex: Female

DRUGS (1)
  1. MOXIFLOXACIN. [Suspect]
     Active Substance: MOXIFLOXACIN
     Indication: ULCERATIVE KERATITIS
     Dosage: UNK
     Route: 047

REACTIONS (6)
  - Drug ineffective [Unknown]
  - Corneal perforation [Recovered/Resolved with Sequelae]
  - Disease progression [Recovered/Resolved with Sequelae]
  - Corneal disorder [Recovered/Resolved with Sequelae]
  - Corneal epithelium defect [Unknown]
  - Corneal infiltrates [Recovered/Resolved with Sequelae]
